FAERS Safety Report 25976612 (Version 1)
Quarter: 2025Q4

REPORT INFORMATION
  Report Type: Spontaneous
  Country: US (occurrence: US)
  Receive Date: 20251029
  Receipt Date: 20251029
  Transmission Date: 20260117
  Serious: No
  Sender: GLAUKOS
  Company Number: US-GLK-000697

PATIENT

DRUGS (1)
  1. IDOSE TR [Suspect]
     Active Substance: TRAVOPROST
     Indication: Product used for unknown indication
     Dosage: OPERATED ON LEFT EYE (OS)
     Route: 047
     Dates: start: 20251011, end: 20251011

REACTIONS (1)
  - Iritis [Recovering/Resolving]
